FAERS Safety Report 11431528 (Version 9)
Quarter: 2016Q1

REPORT INFORMATION
  Report Type: Spontaneous
  Country: US (occurrence: US)
  Receive Date: 20150828
  Receipt Date: 20160219
  Transmission Date: 20160525
  Serious: Yes (Hospitalization, Other)
  Sender: FDA-Public Use
  Company Number: US-ACTELION PHARMACEUTICALS US, INC.-A-NJ2015-122389

PATIENT
  Age: 60 Year
  Sex: Female
  Weight: 72.11 kg

DRUGS (10)
  1. OXYGEN. [Concomitant]
     Active Substance: OXYGEN
     Dosage: 4 L/MIN, UNK
  2. OPSUMIT [Suspect]
     Active Substance: MACITENTAN
     Indication: PULMONARY ARTERIAL HYPERTENSION
     Dosage: 10 MG, QD
     Route: 048
     Dates: start: 20150212, end: 2015
  3. OPSUMIT [Suspect]
     Active Substance: MACITENTAN
     Dosage: UNK
     Route: 048
     Dates: start: 2015, end: 20151016
  4. TREPROSTINIL DIOLAMIN [Suspect]
     Active Substance: TREPROSTINIL DIOLAMINE
     Dosage: 1.125 MG, TID
     Route: 048
  5. TREPROSTINIL DIOLAMIN [Suspect]
     Active Substance: TREPROSTINIL DIOLAMINE
     Dosage: 0.375 MG, TID
     Route: 048
  6. TREPROSTINIL DIOLAMIN [Suspect]
     Active Substance: TREPROSTINIL DIOLAMINE
     Dosage: UNK
     Route: 048
  7. TREPROSTINIL DIOLAMIN [Suspect]
     Active Substance: TREPROSTINIL DIOLAMINE
     Indication: PULMONARY ARTERIAL HYPERTENSION
     Dosage: 0.125 MG, TID
     Route: 048
     Dates: start: 20150916
  8. TREPROSTINIL DIOLAMIN [Suspect]
     Active Substance: TREPROSTINIL DIOLAMINE
     Dosage: UNK
     Route: 048
  9. TREPROSTINIL DIOLAMIN [Suspect]
     Active Substance: TREPROSTINIL DIOLAMINE
     Dosage: 0.25 UNK, UNK
     Route: 048
  10. ADCIRCA [Concomitant]
     Active Substance: TADALAFIL

REACTIONS (28)
  - Cardiac disorder [Unknown]
  - Oxygen saturation decreased [Unknown]
  - Fall [Unknown]
  - Feeling hot [Unknown]
  - Upper respiratory tract infection [Unknown]
  - Nausea [Unknown]
  - Lung infection [Unknown]
  - Wheezing [Unknown]
  - Dyspnoea [Unknown]
  - Arthropod bite [Unknown]
  - Drug hypersensitivity [Unknown]
  - Pain [Unknown]
  - Cough [Unknown]
  - Asthenia [Unknown]
  - Pain in extremity [Unknown]
  - Productive cough [Unknown]
  - Facial paresis [Unknown]
  - Malaise [Unknown]
  - Pulmonary pain [Unknown]
  - Epistaxis [Unknown]
  - Decreased appetite [Unknown]
  - Vomiting [Unknown]
  - Nerve injury [Unknown]
  - Drug dose omission [Unknown]
  - Diarrhoea [Unknown]
  - General physical health deterioration [Unknown]
  - Headache [Unknown]
  - Pruritus [Unknown]

NARRATIVE: CASE EVENT DATE: 201507
